FAERS Safety Report 25705155 (Version 1)
Quarter: 2025Q3

REPORT INFORMATION
  Report Type: Spontaneous
  Country: US (occurrence: None)
  Receive Date: 20250819
  Receipt Date: 20250819
  Transmission Date: 20251020
  Serious: Yes (Other)
  Sender: FDA-CTU
  Company Number: None

PATIENT
  Age: 60 Year
  Sex: Male
  Weight: 92.25 kg

DRUGS (4)
  1. ATORVASTATIN [Suspect]
     Active Substance: ATORVASTATIN
     Indication: Blood cholesterol increased
     Dates: start: 20230315, end: 20250701
  2. EFFIENT [Concomitant]
     Active Substance: PRASUGREL HYDROCHLORIDE
  3. ASPIRIN [Concomitant]
     Active Substance: ASPIRIN
  4. COQ10 Mulit Vitamin [Concomitant]

REACTIONS (11)
  - Plantar fascial fibromatosis [None]
  - Hypoaesthesia [None]
  - Hypoaesthesia [None]
  - Trigger finger [None]
  - Carpal tunnel syndrome [None]
  - Muscle spasms [None]
  - Neuropathy peripheral [None]
  - Sensory disturbance [None]
  - Asthenia [None]
  - Tendon rupture [None]
  - Muscle rupture [None]

NARRATIVE: CASE EVENT DATE: 20231001
